FAERS Safety Report 10192906 (Version 1)
Quarter: 2014Q2

REPORT INFORMATION
  Report Type: Spontaneous
  Country: US (occurrence: US)
  Receive Date: 20140523
  Receipt Date: 20140523
  Transmission Date: 20141212
  Serious: Yes (Hospitalization)
  Sender: FDA-Public Use
  Company Number: US-ASTRAZENECA-2014SE34339

PATIENT
  Age: 56 Year
  Sex: Female
  Weight: 97.5 kg

DRUGS (6)
  1. METOPROLOL SUCCINATE [Suspect]
     Indication: HYPERTENSION
     Route: 048
     Dates: start: 201404, end: 201405
  2. METOPROLOL SUCCINATE [Suspect]
     Indication: ATRIAL FLUTTER
     Route: 048
     Dates: start: 201404, end: 201405
  3. METOPROLOL TARTRATE [Suspect]
     Route: 048
  4. XARELTO [Suspect]
     Route: 065
  5. METFORMIN ER [Concomitant]
     Indication: DIABETES MELLITUS
     Route: 048
     Dates: start: 2004
  6. LESCOL [Concomitant]
     Indication: BLOOD CHOLESTEROL ABNORMAL
     Route: 048
     Dates: start: 2004

REACTIONS (3)
  - Epistaxis [Recovered/Resolved]
  - Heart rate decreased [Recovered/Resolved]
  - Intentional product misuse [Unknown]
